FAERS Safety Report 24622493 (Version 2)
Quarter: 2024Q4

REPORT INFORMATION
  Report Type: Spontaneous
  Country: FR (occurrence: FR)
  Receive Date: 20241115
  Receipt Date: 20241121
  Transmission Date: 20250115
  Serious: Yes (Hospitalization, Other)
  Sender: BAXTER
  Company Number: None

PATIENT
  Age: 49 Year
  Sex: Female
  Weight: 55 kg

DRUGS (4)
  1. PROPOFOL [Suspect]
     Active Substance: PROPOFOL
     Indication: General anaesthesia
     Dosage: (DURATION: 1 DAYS) 200 MG, ONE IN TOTAL
     Route: 042
     Dates: start: 20240729, end: 20240729
  2. KETAMINE HYDROCHLORIDE [Suspect]
     Active Substance: KETAMINE HYDROCHLORIDE
     Indication: General anaesthesia
     Dosage: (DURATION: 1 DAYS) 15 MG, ONE IN TOTAL
     Route: 042
     Dates: start: 20240729, end: 20240729
  3. SUFENTANIL [Suspect]
     Active Substance: SUFENTANIL
     Indication: General anaesthesia
     Dosage: (DURATION: 1 DAYS) 15 UG, ONE IN TOTAL
     Route: 042
     Dates: start: 20240729, end: 20240729
  4. MIDAZOLAM [Suspect]
     Active Substance: MIDAZOLAM
     Indication: General anaesthesia
     Dosage: (DURATION: 1 DAYS) 2 MG, ONE IN TOTAL
     Route: 042
     Dates: start: 20240729, end: 20240729

REACTIONS (2)
  - Delirium [Not Recovered/Not Resolved]
  - Condition aggravated [Recovering/Resolving]

NARRATIVE: CASE EVENT DATE: 20240729
